FAERS Safety Report 9094951 (Version 2)
Quarter: 2013Q1

REPORT INFORMATION
  Report Type: Spontaneous
  Country: IT (occurrence: IT)
  Receive Date: 20130201
  Receipt Date: 20130312
  Transmission Date: 20140127
  Serious: Yes (Hospitalization)
  Sender: FDA-Public Use
  Company Number: IT-ELI_LILLY_AND_COMPANY-IT201301008004

PATIENT
  Age: 93 Year
  Sex: Female

DRUGS (5)
  1. HUMULIN REGULAR [Suspect]
     Indication: DIABETES MELLITUS
     Dosage: 8 IU, UNK
     Route: 058
     Dates: start: 20121115, end: 20121115
  2. HUMULIN 30/70 [Concomitant]
     Indication: DIABETES MELLITUS
     Dosage: UNK, UNKNOWN
     Route: 058
  3. ASCRIPTIN [Concomitant]
     Route: 048
  4. NORVASC [Concomitant]
     Dosage: 10 MG, UNK
     Route: 048
  5. TEVETENZ [Concomitant]
     Dosage: 600 MG, UNK
     Route: 048

REACTIONS (3)
  - Head injury [Unknown]
  - Hypoglycaemia [Recovered/Resolved]
  - Syncope [Recovered/Resolved]
